FAERS Safety Report 19896022 (Version 1)
Quarter: 2021Q3

REPORT INFORMATION
  Report Type: Spontaneous
  Country: NL (occurrence: PT)
  Receive Date: 20210929
  Receipt Date: 20210929
  Transmission Date: 20211014
  Serious: Yes (Other)
  Sender: FDA-Public Use
  Company Number: PT-FRESENIUS KABI-FK202109973

PATIENT
  Age: 52 Year
  Sex: Female
  Weight: 68 kg

DRUGS (1)
  1. OXALIPLATIN 5MG/ML CONCENTRATE FOR SOLUTION FOR INFUSION [Suspect]
     Active Substance: OXALIPLATIN
     Indication: RECTAL CANCER
     Dosage: OXALIPLATIN 224,9 MG IN 180MIN
     Route: 042
     Dates: start: 20210601, end: 20210601

REACTIONS (6)
  - Dry mouth [Recovered/Resolved]
  - Feeling hot [Recovered/Resolved]
  - Monoplegia [Recovered/Resolved]
  - Heart rate increased [Recovered/Resolved]
  - Tremor [Recovered/Resolved]
  - Dysarthria [Recovered/Resolved]

NARRATIVE: CASE EVENT DATE: 20210601
